FAERS Safety Report 13372912 (Version 1)
Quarter: 2017Q1

REPORT INFORMATION
  Report Type: Spontaneous
  Country: US (occurrence: US)
  Receive Date: 20170325
  Receipt Date: 20170325
  Transmission Date: 20170429
  Serious: No
  Sender: FDA-Public Use
  Company Number: None

PATIENT
  Age: 32 Year
  Sex: Female
  Weight: 81 kg

DRUGS (1)
  1. ROBITUSSIN CF [Suspect]
     Active Substance: DEXTROMETHORPHAN\GUAIFENESIN\PSEUDOEPHEDRINE HYDROCHLORIDE
     Indication: INFLUENZA
     Dosage: ?          QUANTITY:20 ML;?
     Route: 048
     Dates: start: 20170325

REACTIONS (3)
  - Gastrointestinal pain [None]
  - Abdominal pain upper [None]
  - Diarrhoea [None]

NARRATIVE: CASE EVENT DATE: 20170325
